FAERS Safety Report 21098734 (Version 2)
Quarter: 2022Q3

REPORT INFORMATION
  Report Type: Spontaneous
  Country: US (occurrence: US)
  Receive Date: 20220719
  Receipt Date: 20220729
  Transmission Date: 20221026
  Serious: Yes (Other)
  Sender: FDA-Public Use
  Company Number: US-BRISTOL-MYERS SQUIBB COMPANY-2022-072931

PATIENT
  Age: 70 Year
  Sex: Male

DRUGS (1)
  1. REVLIMID [Suspect]
     Active Substance: LENALIDOMIDE
     Indication: Follicular lymphoma
     Dosage: FREQ : TAKE ONE CAPSULE DAILY FOR DAYS 1-21, 7 DAYS OFF
     Route: 048
     Dates: start: 20210708

REACTIONS (3)
  - Pneumonia [Unknown]
  - COVID-19 [Unknown]
  - Night sweats [Unknown]
